FAERS Safety Report 8041618-7 (Version None)
Quarter: 2012Q1

REPORT INFORMATION
  Report Type: 
  Country: None (occurrence: None)
  Receive Date: 20120112
  Receipt Date: 20120104
  Transmission Date: 20120608
  Serious: Yes (Hospitalization)
  Sender: FDA-Public Use
  Company Number: US-JNJFOC-20120103452

PATIENT
  Age: 61 Year
  Sex: Male

DRUGS (2)
  1. NUCYNTA ER [Suspect]
     Indication: PAIN
     Route: 048
     Dates: start: 20111223, end: 20111230
  2. LEVAQUIN [Suspect]
     Indication: INFECTION
     Route: 048
     Dates: start: 20111231, end: 20120101

REACTIONS (1)
  - DYSKINESIA [None]
